FAERS Safety Report 9993507 (Version 1)
Quarter: 2014Q1

REPORT INFORMATION
  Report Type: Spontaneous
  Country: DE (occurrence: DE)
  Receive Date: 20140310
  Receipt Date: 20140310
  Transmission Date: 20141002
  Serious: Yes (Other)
  Sender: FDA-Public Use
  Company Number: DE-MYLANLABS-2014S1004478

PATIENT
  Age: 60 Year
  Sex: Male
  Weight: 112.8 kg

DRUGS (3)
  1. AZATHIOPRINE [Suspect]
     Indication: GRANULOMATOSIS WITH POLYANGIITIS
     Dosage: DAILY DOSE: 50 MG MILLGRAM(S) EVERY DAYS
     Dates: start: 201111
  2. ADENURIC [Suspect]
     Indication: HYPERURICAEMIA
     Dosage: 3X/WOCHE
     Dates: start: 201312, end: 201401
  3. PREDNISOLON [Concomitant]
     Dates: start: 20111103

REACTIONS (3)
  - Blood creatine phosphokinase increased [Recovering/Resolving]
  - Fatigue [Recovered/Resolved]
  - Somnolence [Recovered/Resolved]
